FAERS Safety Report 5832102-7 (Version None)
Quarter: 2008Q3

REPORT INFORMATION
  Report Type: 
  Country: None (occurrence: None)
  Receive Date: 20080804
  Receipt Date: 20080731
  Transmission Date: 20090109
  Serious: Yes (Other)
  Sender: FDA-Public Use
  Company Number: US-RB-002666-08

PATIENT
  Sex: Female

DRUGS (4)
  1. SUBOXONE [Suspect]
     Route: 060
     Dates: start: 20080104
  2. TOPAMAX [Concomitant]
     Indication: MIGRAINE
     Route: 065
  3. NEURONTIN [Concomitant]
     Indication: MIGRAINE
     Route: 065
  4. SEROQUEL [Concomitant]
     Indication: SLEEP DISORDER
     Route: 065

REACTIONS (6)
  - BRAIN MASS [None]
  - CEREBRAL DISORDER [None]
  - CEREBRAL VENTRICLE DILATATION [None]
  - DRUG EXPOSURE DURING PREGNANCY [None]
  - HYDROCEPHALUS [None]
  - PLACENTA PRAEVIA [None]
